FAERS Safety Report 9215837 (Version 3)
Quarter: 2014Q1

REPORT INFORMATION
  Report Type: Spontaneous
  Country: US (occurrence: US)
  Receive Date: 20130408
  Receipt Date: 20140120
  Transmission Date: 20141002
  Serious: No
  Sender: FDA-Public Use
  Company Number: US-BIOGENIDEC-2013BI029898

PATIENT
  Sex: Female

DRUGS (1)
  1. TYSABRI [Suspect]
     Indication: MULTIPLE SCLEROSIS
     Route: 042
     Dates: start: 20080820, end: 20081210

REACTIONS (5)
  - Visual impairment [Not Recovered/Not Resolved]
  - Hearing impaired [Not Recovered/Not Resolved]
  - Secondary progressive multiple sclerosis [Not Recovered/Not Resolved]
  - Drug ineffective [Recovered/Resolved]
  - Multiple sclerosis [Recovered/Resolved]
